FAERS Safety Report 8690338 (Version 3)
Quarter: 2015Q1

REPORT INFORMATION
  Report Type: Spontaneous
  Country: US (occurrence: US)
  Receive Date: 20120727
  Receipt Date: 20150304
  Transmission Date: 20150721
  Serious: Yes (Other)
  Sender: FDA-Public Use
  Company Number: US-ASTRAZENECA-2012SE23695

PATIENT
  Age: 54 Year
  Sex: Female
  Weight: 84.8 kg

DRUGS (5)
  1. HYDROCODONE [Concomitant]
     Active Substance: HYDROCODONE
     Indication: PAIN
     Dosage: 10/325 MG QD
     Route: 048
     Dates: start: 2007
  2. NEXIUM [Suspect]
     Active Substance: ESOMEPRAZOLE MAGNESIUM
     Indication: NAUSEA
     Route: 048
     Dates: start: 201402
  3. VALIUM [Concomitant]
     Active Substance: DIAZEPAM
     Indication: ANXIETY
     Route: 048
  4. SEROQUEL XR [Suspect]
     Active Substance: QUETIAPINE FUMARATE
     Indication: BIPOLAR DISORDER
     Route: 048
  5. AMBIEN [Concomitant]
     Active Substance: ZOLPIDEM TARTRATE
     Indication: SLEEP DISORDER
     Dosage: 10 MG QHS
     Route: 048

REACTIONS (14)
  - Intervertebral disc degeneration [Unknown]
  - Weight increased [Not Recovered/Not Resolved]
  - Balance disorder [Unknown]
  - Road traffic accident [Unknown]
  - Diverticulitis [Unknown]
  - Product use issue [Unknown]
  - Agitation [Unknown]
  - Arthritis [Unknown]
  - Drug dose omission [Not Recovered/Not Resolved]
  - Intervertebral disc disorder [Unknown]
  - Headache [Unknown]
  - Increased appetite [Not Recovered/Not Resolved]
  - Irritable bowel syndrome [Not Recovered/Not Resolved]
  - Nausea [Unknown]

NARRATIVE: CASE EVENT DATE: 2007
